FAERS Safety Report 4680933-1 (Version None)
Quarter: 2005Q2

REPORT INFORMATION
  Report Type: 
  Country: None (occurrence: None)
  Receive Date: 20050531
  Receipt Date: 20050531
  Transmission Date: 20051028
  Serious: Yes (Other)
  Sender: FDA-Public Use
  Company Number: None

PATIENT
  Age: 45 Year
  Sex: Female
  Weight: 95.2554 kg

DRUGS (4)
  1. CLOZAPINE [Suspect]
     Indication: SCHIZOAFFECTIVE DISORDER
     Dosage: P.O. 100 MG A.M. 150 MG P.M.
     Route: 048
     Dates: start: 20040622, end: 20050324
  2. LITHIUM CARBONATE [Concomitant]
  3. LOXAPINE [Concomitant]
  4. BENZTROPINE [Concomitant]

REACTIONS (1)
  - AGRANULOCYTOSIS [None]
